FAERS Safety Report 8833222 (Version 1)
Quarter: 2012Q4

REPORT INFORMATION
  Report Type: 
  Country: BR (occurrence: BR)
  Receive Date: 20121010
  Receipt Date: 20121010
  Transmission Date: 20130627
  Serious: Yes (Other)
  Sender: FDA-Public Use
  Company Number: PHHY2012BR088855

PATIENT
  Sex: Female

DRUGS (1)
  1. ACLASTA [Suspect]
     Dosage: 5 mg, UNK
     Route: 042

REACTIONS (6)
  - Arthropathy [Not Recovered/Not Resolved]
  - Facial pain [Not Recovered/Not Resolved]
  - Swelling face [Not Recovered/Not Resolved]
  - Chills [Not Recovered/Not Resolved]
  - Rash macular [Not Recovered/Not Resolved]
  - Paraesthesia [Not Recovered/Not Resolved]
